FAERS Safety Report 24281964 (Version 1)
Quarter: 2024Q3

REPORT INFORMATION
  Report Type: Spontaneous
  Country: FR (occurrence: FR)
  Receive Date: 20240904
  Receipt Date: 20240904
  Transmission Date: 20241017
  Serious: Yes (Disabling, Other)
  Sender: SANOFI AVENTIS
  Company Number: None

PATIENT
  Age: 51 Year
  Sex: Female
  Weight: 80 kg

DRUGS (21)
  1. CAPECITABINE [Suspect]
     Active Substance: CAPECITABINE
     Indication: Invasive ductal breast carcinoma
     Dosage: 1500 MG (MORNING AND EVENING FROM D1 TO D14)
     Route: 048
     Dates: start: 20050318, end: 200506
  2. CAPECITABINE [Suspect]
     Active Substance: CAPECITABINE
     Dosage: 2000 MG, QD (FROM D1 TO D14)
     Route: 048
     Dates: start: 20050630, end: 20051110
  3. CLONAZEPAM [Suspect]
     Active Substance: CLONAZEPAM
     Indication: Osteonecrosis of jaw
     Dosage: 0.250%
     Dates: start: 20051028
  4. ZOLEDRONIC ACID [Suspect]
     Active Substance: ZOLEDRONIC ACID
     Indication: Invasive ductal breast carcinoma
     Dosage: 4 MG
     Route: 042
     Dates: start: 20020806, end: 20060110
  5. VINORELBINE TARTRATE [Suspect]
     Active Substance: VINORELBINE TARTRATE
     Indication: Invasive ductal breast carcinoma
     Dosage: 25 MG/M2 (INJECTABLE AT A DOSE OF 25 MG/M2)
     Route: 048
     Dates: start: 20050318, end: 200506
  6. VINORELBINE TARTRATE [Suspect]
     Active Substance: VINORELBINE TARTRATE
     Dosage: 90 MG (ORAL DOSE ON DAY ONE AND DAY)
     Route: 048
     Dates: start: 20050630, end: 20051110
  7. PACLITAXEL [Suspect]
     Active Substance: PACLITAXEL
     Indication: Invasive ductal breast carcinoma
     Dosage: UNK UNK, QW
     Dates: start: 200206
  8. ANASTROZOLE [Suspect]
     Active Substance: ANASTROZOLE
     Indication: Hormone therapy
     Dosage: UNK
     Dates: start: 200303, end: 200404
  9. TAXOTERE [Suspect]
     Active Substance: DOCETAXEL
     Indication: Hormone therapy
     Dosage: QW
     Dates: start: 200303, end: 200404
  10. PREDNISOLONE SODIUM METAZOATE [Suspect]
     Active Substance: PREDNISOLONE SODIUM METAZOATE
     Dates: start: 20051028
  11. SKENAN [Concomitant]
     Active Substance: MORPHINE SULFATE
     Dosage: UNK
     Dates: start: 20051028
  12. PROZAC [Concomitant]
     Active Substance: FLUOXETINE HYDROCHLORIDE
     Dosage: 20 MG
     Dates: start: 20051028
  13. LANSOPRAZOLE [Concomitant]
     Active Substance: LANSOPRAZOLE
     Dosage: 30 MG
     Dates: start: 20051028
  14. HEPTAMINOL [Concomitant]
     Active Substance: HEPTAMINOL
     Dosage: UNK
     Dates: start: 20051028
  15. Praxinor [Concomitant]
     Dosage: UNK
     Dates: start: 20051028
  16. ZOLPIDEM ALPHARMA [Concomitant]
     Dosage: 10 MG
     Dates: start: 20051028
  17. Previscan [Concomitant]
     Dosage: UNK
     Dates: start: 20051028, end: 2006
  18. POLYETHYLENE GLYCOL 4000 [Concomitant]
     Active Substance: POLYETHYLENE GLYCOL 4000
     Dosage: 10 G
     Dates: start: 20051028
  19. DITROPAN [Concomitant]
     Active Substance: OXYBUTYNIN CHLORIDE
     Dates: start: 20051028
  20. XYLOCAINE [Concomitant]
     Active Substance: LIDOCAINE HYDROCHLORIDE
     Dosage: UNK
     Dates: start: 20051028
  21. HEXAQUINE [Concomitant]
     Active Substance: NIAOULI OIL\QUININE BENZOATE\THIAMINE HYDROCHLORIDE
     Dosage: UNK
     Dates: start: 20051028

REACTIONS (2)
  - Osteonecrosis [Recovering/Resolving]
  - Mucosal inflammation [Unknown]

NARRATIVE: CASE EVENT DATE: 20051110
